FAERS Safety Report 5962472-0 (Version None)
Quarter: 2008Q4

REPORT INFORMATION
  Report Type: 
  Country: None (occurrence: None)
  Receive Date: 20081121
  Receipt Date: 20081111
  Transmission Date: 20090506
  Serious: Yes (Other)
  Sender: FDA-Public Use
  Company Number: US-PFIZER INC-2008083613

PATIENT
  Age: 80 Year
  Sex: Male
  Weight: 86.363 kg

DRUGS (13)
  1. REVATIO [Suspect]
     Indication: PULMONARY HYPERTENSION
     Dates: start: 20080701, end: 20080801
  2. INSULIN [Concomitant]
  3. DIGOXIN [Concomitant]
  4. PRANDIN [Concomitant]
  5. WARFARIN SODIUM [Concomitant]
  6. SIMVASTATIN [Concomitant]
  7. ALL OTHER THERAPEUTIC PRODUCTS [Concomitant]
  8. METOPROLOL [Concomitant]
  9. LANTUS [Concomitant]
  10. COLCHICINE [Concomitant]
  11. CELEBREX [Concomitant]
  12. PRILOSEC [Concomitant]
  13. VALSARTAN [Concomitant]

REACTIONS (1)
  - FLUID RETENTION [None]
